FAERS Safety Report 23364354 (Version 6)
Quarter: 2024Q2

REPORT INFORMATION
  Report Type: Report from Study
  Country: KR (occurrence: KR)
  Receive Date: 20240104
  Receipt Date: 20240402
  Transmission Date: 20240716
  Serious: Yes (Hospitalization, Other)
  Sender: FDA-Public Use
  Company Number: KR-002147023-NVSC2023KR260732

PATIENT
  Sex: Male
  Weight: 6 kg

DRUGS (8)
  1. ZOLGENSMA [Suspect]
     Active Substance: ONASEMNOGENE ABEPARVOVEC-XIOI
     Indication: Spinal muscular atrophy
     Dosage: 33 ML, ONCE/SINGLE
     Route: 042
     Dates: start: 20231028, end: 20231028
  2. ZOLGENSMA [Suspect]
     Active Substance: ONASEMNOGENE ABEPARVOVEC-XIOI
     Dosage: 33 ML, ONCE/SINGLE
     Route: 042
     Dates: start: 20231128, end: 20231128
  3. PREDNISOLONE [Concomitant]
     Active Substance: PREDNISOLONE
     Indication: Product used for unknown indication
     Dosage: UNK, TID
     Route: 048
     Dates: start: 2023
  4. PREDNISOLONE [Concomitant]
     Active Substance: PREDNISOLONE
     Dosage: UNK, BID
     Route: 048
     Dates: start: 20231126, end: 20231221
  5. PREDNISOLONE [Concomitant]
     Active Substance: PREDNISOLONE
     Dosage: UNK, TID
     Route: 048
     Dates: start: 20240102, end: 202401
  6. PREDNISOLONE [Concomitant]
     Active Substance: PREDNISOLONE
     Dosage: UNK, BID
     Route: 048
     Dates: start: 202401, end: 20240115
  7. URSODIOL [Concomitant]
     Active Substance: URSODIOL
     Indication: Product used for unknown indication
     Dosage: UNK, QD
     Route: 048
     Dates: end: 202401
  8. LANSOPRAZOLE [Concomitant]
     Active Substance: LANSOPRAZOLE
     Indication: Product used for unknown indication
     Dosage: UNK
     Route: 048
     Dates: end: 202401

REACTIONS (10)
  - Oxygen saturation abnormal [Recovering/Resolving]
  - Respiratory syncytial virus infection [Recovered/Resolved]
  - Productive cough [Not Recovered/Not Resolved]
  - White blood cell count increased [Recovered/Resolved]
  - Liver function test increased [Recovered/Resolved]
  - Vomiting [Recovered/Resolved]
  - Weight decreased [Recovered/Resolved]
  - Pulse abnormal [Recovered/Resolved]
  - Pyrexia [Recovered/Resolved]
  - Reflux gastritis [Recovered/Resolved]

NARRATIVE: CASE EVENT DATE: 20230101
